FAERS Safety Report 8506127-7 (Version None)
Quarter: 2012Q3

REPORT INFORMATION
  Report Type: 
  Country: None (occurrence: None)
  Receive Date: 20120712
  Receipt Date: 20120705
  Transmission Date: 20120928
  Serious: Yes (Other)
  Sender: FDA-Public Use
  Company Number: AU-ALEXION PHARMACEUTICALS INC.-A201201292

PATIENT
  Sex: Male

DRUGS (3)
  1. SOLIRIS [Suspect]
     Indication: PAROXYSMAL NOCTURNAL HAEMOGLOBINURIA
     Dosage: 900 MG, Q2W
     Route: 042
  2. FOLIC ACID [Concomitant]
     Dosage: UNK
  3. WARFARIN SODIUM [Concomitant]
     Dosage: UNK

REACTIONS (5)
  - HYPOKALAEMIA [None]
  - GASTROENTERITIS [None]
  - JAUNDICE [None]
  - HAEMOLYSIS [None]
  - OCULAR ICTERUS [None]
